FAERS Safety Report 15109866 (Version 2)
Quarter: 2018Q3

REPORT INFORMATION
  Report Type: Report from Study
  Country: JP (occurrence: JP)
  Receive Date: 20180705
  Receipt Date: 20180917
  Transmission Date: 20181010
  Serious: Yes (Hospitalization)
  Sender: FDA-Public Use
  Company Number: JP-ACTELION-A-CH2018-174883

PATIENT
  Age: 74 Year
  Sex: Female

DRUGS (13)
  1. OPSUMIT [Suspect]
     Active Substance: MACITENTAN
     Indication: PULMONARY ARTERIAL HYPERTENSION
     Dosage: 10 MG, OD
     Route: 048
     Dates: start: 20170123
  2. MUCODYNE [Concomitant]
     Active Substance: CARBOCYSTEINE
  3. MUCOSOLVAN [Concomitant]
     Active Substance: AMBROXOL HYDROCHLORIDE
  4. IPD [Concomitant]
     Active Substance: SUPLATAST TOSILATE
  5. NU?LOTAN [Concomitant]
     Active Substance: LOSARTAN POTASSIUM
  6. BENET [Concomitant]
     Active Substance: RISEDRONATE SODIUM
  7. CARELOAD [Concomitant]
     Active Substance: BERAPROST SODIUM
  8. REVATIO [Concomitant]
     Active Substance: SILDENAFIL CITRATE
  9. LIPITOR [Concomitant]
     Active Substance: ATORVASTATIN CALCIUM
  10. VASOLAN [Concomitant]
     Active Substance: VERAPAMIL HYDROCHLORIDE
  11. TAKEPRON [Concomitant]
     Active Substance: LANSOPRAZOLE
  12. PREDNISOLONE. [Concomitant]
     Active Substance: PREDNISOLONE
  13. MUCOSTA [Concomitant]
     Active Substance: REBAMIPIDE

REACTIONS (5)
  - Productive cough [Recovered/Resolved]
  - Pneumonia bacterial [Recovered/Resolved]
  - Upper respiratory tract inflammation [Recovered/Resolved]
  - Pyrexia [Recovered/Resolved]
  - Nasopharyngitis [Recovered/Resolved]

NARRATIVE: CASE EVENT DATE: 20170930
